FAERS Safety Report 22343837 (Version 1)
Quarter: 2023Q2

REPORT INFORMATION
  Report Type: Spontaneous
  Country: RU (occurrence: RU)
  Receive Date: 20230519
  Receipt Date: 20230519
  Transmission Date: 20230722
  Serious: Yes (Other)
  Sender: FDA-Public Use
  Company Number: RU-MLMSERVICE-20230503-4269577-1

PATIENT
  Age: 3 Year
  Sex: Male

DRUGS (8)
  1. CARBOPLATIN [Suspect]
     Active Substance: CARBOPLATIN
     Indication: Brain cancer metastatic
     Dosage: NEXT, TWO CYCLES OF HIGH DOSE CHEMOTHERAPY (HDCT) WITH A CONDITIONING REGIMEN
     Dates: start: 201710
  2. ETOPOSIDE [Suspect]
     Active Substance: ETOPOSIDE
     Indication: Metastases to spine
     Dosage: NEXT, TWO CYCLES OF HIGH DOSE CHEMOTHERAPY (HDCT) WITH A CONDITIONING REGIMEN
     Dates: start: 201710
  3. THIOTEPA [Suspect]
     Active Substance: THIOTEPA
     Indication: Brain cancer metastatic
     Dosage: NEXT, TWO CYCLES OF HIGH DOSE CHEMOTHERAPY (HDCT) WITH A CONDITIONING REGIMEN
     Dates: start: 201710
  4. CYCLOPHOSPHAMIDE [Suspect]
     Active Substance: CYCLOPHOSPHAMIDE
     Indication: Medulloblastoma
     Dosage: NEXT, TWO CYCLES OF HIGH DOSE CHEMOTHERAPY (HDCT) WITH A CONDITIONING REGIMEN
     Dates: start: 201710
  5. CARBOPLATIN [Suspect]
     Active Substance: CARBOPLATIN
     Indication: Metastases to spine
     Dosage: NEXT, TWO CYCLES OF HIGH DOSE CHEMOTHERAPY (HDCT) WITH A CONDITIONING REGIMEN
     Dates: start: 201710
  6. THIOTEPA [Suspect]
     Active Substance: THIOTEPA
     Indication: Metastases to spine
     Dosage: NEXT, TWO CYCLES OF HIGH DOSE CHEMOTHERAPY (HDCT) WITH A CONDITIONING REGIMEN
     Dates: start: 201710
  7. CYCLOPHOSPHAMIDE [Suspect]
     Active Substance: CYCLOPHOSPHAMIDE
     Indication: Brain cancer metastatic
     Dosage: NEXT, TWO CYCLES OF HIGH DOSE CHEMOTHERAPY (HDCT) WITH A CONDITIONING REGIMEN
     Dates: start: 201710
  8. ETOPOSIDE [Suspect]
     Active Substance: ETOPOSIDE
     Indication: Medulloblastoma
     Dosage: NEXT, TWO CYCLES OF HIGH DOSE CHEMOTHERAPY (HDCT) WITH A CONDITIONING REGIMEN
     Dates: start: 201710

REACTIONS (5)
  - Klebsiella infection [Unknown]
  - Mucosal inflammation [Unknown]
  - Pancytopenia [Unknown]
  - Enterocolitis bacterial [Unknown]
  - Dermatitis [Unknown]
